FAERS Safety Report 14607584 (Version 1)
Quarter: 2018Q1

REPORT INFORMATION
  Report Type: Spontaneous
  Country: PT (occurrence: PT)
  Receive Date: 20180307
  Receipt Date: 20180307
  Transmission Date: 20180509
  Serious: Yes (Life-Threatening, Hospitalization)
  Sender: FDA-Public Use
  Company Number: PT-TEVA-2018-PT-864187

PATIENT
  Age: 73 Year
  Sex: Male

DRUGS (13)
  1. ETHAMBUTOL [Concomitant]
     Active Substance: ETHAMBUTOL HYDROCHLORIDE
     Dates: start: 20180104
  2. ASPIRINA GR 100MG COMPRIMIDOS GASTRORRESISTENTES [Concomitant]
  3. METFORMIN [Suspect]
     Active Substance: METFORMIN HYDROCHLORIDE
     Indication: DIABETES MELLITUS
     Route: 048
     Dates: end: 20180109
  4. PYRIDOXINE [Concomitant]
     Active Substance: PYRIDOXINE
     Dates: start: 20180104
  5. TAMSULOSIN [Concomitant]
     Active Substance: TAMSULOSIN
  6. LISINOPRIL. [Concomitant]
     Active Substance: LISINOPRIL
  7. SIMVASTATIN. [Concomitant]
     Active Substance: SIMVASTATIN
  8. PYRAZINAMIDE. [Concomitant]
     Active Substance: PYRAZINAMIDE
     Dates: start: 20180104
  9. CARVEDILOL. [Concomitant]
     Active Substance: CARVEDILOL
  10. ISONIAZID. [Concomitant]
     Active Substance: ISONIAZID
     Dates: start: 20180104
  11. FUROSEMIDE. [Concomitant]
     Active Substance: FUROSEMIDE
  12. RIFAMPICIN [Concomitant]
     Active Substance: RIFAMPIN
     Dates: start: 20180104
  13. LANTUS [Concomitant]
     Active Substance: INSULIN GLARGINE

REACTIONS (2)
  - Acute kidney injury [Recovering/Resolving]
  - Lactic acidosis [Recovering/Resolving]

NARRATIVE: CASE EVENT DATE: 20180109
